FAERS Safety Report 9677947 (Version 2)
Quarter: 2013Q4

REPORT INFORMATION
  Report Type: Spontaneous
  Country: BR (occurrence: BR)
  Receive Date: 20131108
  Receipt Date: 20131115
  Transmission Date: 20140711
  Serious: No
  Sender: FDA-Public Use
  Company Number: BR-ASTRAZENECA-2013SE81122

PATIENT
  Sex: Male

DRUGS (4)
  1. CRESTOR [Suspect]
     Indication: BLOOD CHOLESTEROL ABNORMAL
     Route: 048
     Dates: start: 201306
  2. BRILINTA [Suspect]
     Indication: INFARCTION
     Route: 048
     Dates: start: 201306
  3. ASA [Concomitant]
     Indication: INFARCTION
  4. ASA [Concomitant]
     Indication: INFARCTION
     Dosage: REDUCED

REACTIONS (3)
  - Blood cholesterol decreased [Not Recovered/Not Resolved]
  - Blood urine present [Unknown]
  - Haematoma [Unknown]
